FAERS Safety Report 4270599-7 (Version None)
Quarter: 2004Q1

REPORT INFORMATION
  Report Type: 
  Country: None (occurrence: None)
  Receive Date: 20040114
  Receipt Date: 20040114
  Transmission Date: 20041129
  Serious: No
  Sender: FDA-Public Use
  Company Number: None

PATIENT

DRUGS (1)
  1. LIDOCAINE HCL [Suspect]
     Dosage: 5 ML (100 MG)

REACTIONS (1)
  - MEDICATION ERROR [None]
